FAERS Safety Report 7178969 (Version 5)
Quarter: 2014Q3

REPORT INFORMATION
  Report Type: Spontaneous
  Country: JP (occurrence: JP)
  Receive Date: 20091117
  Receipt Date: 20140819
  Transmission Date: 20150326
  Serious: Yes (Hospitalization, Other)
  Sender: FDA-Public Use
  Company Number: PHHY2009JP48269

PATIENT
  Age: 69 Year
  Sex: Female
  Weight: 44 kg

DRUGS (16)
  1. ZOMETA [Suspect]
     Active Substance: ZOLEDRONIC ACID
     Indication: METASTASES TO BONE
     Dosage: 4 MG, PER ADMINISTRATION
     Route: 042
     Dates: start: 20070823, end: 20091009
  2. LOXONIN [Concomitant]
     Active Substance: LOXOPROFEN SODIUM
     Indication: BACK PAIN
     Route: 048
     Dates: start: 20080625
  3. PROMAC [Concomitant]
     Active Substance: NITROFURANTOIN
     Indication: ZINC DEFICIENCY
     Dosage: 150 MG, UNK
     Route: 048
     Dates: start: 20090415
  4. TAXOTERE [Concomitant]
     Active Substance: DOCETAXEL
     Dates: start: 20080807, end: 20090109
  5. MOBIC [Concomitant]
     Active Substance: MELOXICAM
     Indication: BACK PAIN
     Dosage: 10 MG, UNK
     Route: 048
     Dates: start: 20080806, end: 20090109
  6. NOVAMIN [Concomitant]
     Active Substance: PROCHLORPERAZINE MALEATE
     Indication: NAUSEA
     Route: 048
     Dates: start: 20081031
  7. IRESSA [Concomitant]
     Active Substance: GEFITINIB
     Indication: LUNG ADENOCARCINOMA
     Dosage: 250 MG, UNK
     Route: 048
     Dates: start: 20060516, end: 20080723
  8. TOCOPHERYL NICOTINATE [Concomitant]
     Active Substance: TOCOPHERYL NICOTINATE, D-.ALPHA.
     Indication: HYPOVITAMINOSIS
     Dosage: 300 MG, UNK
     Route: 048
     Dates: start: 20080806, end: 20090109
  9. TARCEVA [Concomitant]
     Active Substance: ERLOTINIB HYDROCHLORIDE
     Indication: LUNG ADENOCARCINOMA
     Dosage: 150 MG, UNK
     Route: 048
     Dates: start: 20090206, end: 200906
  10. ZOMETA [Suspect]
     Active Substance: ZOLEDRONIC ACID
     Indication: LUNG NEOPLASM MALIGNANT
  11. CRESTOR [Concomitant]
     Active Substance: ROSUVASTATIN CALCIUM
     Indication: HYPERLIPIDAEMIA
     Dosage: 25 MG, UNK
     Route: 048
     Dates: start: 20070823, end: 20090401
  12. FOLIC ACID. [Concomitant]
     Active Substance: FOLIC ACID
  13. GASTER [Concomitant]
     Active Substance: FAMOTIDINE
     Indication: GASTRITIS
     Dosage: 20 MG, UNK
     Route: 048
     Dates: start: 20081024, end: 20090209
  14. ALIMTA [Concomitant]
     Active Substance: PEMETREXED DISODIUM
     Dates: start: 20090611
  15. TAXOL [Concomitant]
     Active Substance: PACLITAXEL
     Route: 042
     Dates: start: 20080807, end: 20090109
  16. MEIACT [Concomitant]
     Active Substance: CEFDITOREN PIVOXIL
     Dosage: 600 MG, UNK
     Route: 048
     Dates: start: 20091016

REACTIONS (14)
  - Discomfort [Unknown]
  - Concomitant disease aggravated [Unknown]
  - Osteomyelitis [Not Recovered/Not Resolved]
  - Pyrexia [Recovering/Resolving]
  - Loose tooth [Unknown]
  - Jaw disorder [Unknown]
  - Malignant neoplasm progression [Unknown]
  - Metastases to central nervous system [Unknown]
  - Toothache [Unknown]
  - Skin disorder [Unknown]
  - Dental discomfort [Unknown]
  - Carcinoembryonic antigen increased [Unknown]
  - Gastrointestinal disorder [Unknown]
  - Bone disorder [Unknown]

NARRATIVE: CASE EVENT DATE: 20071114
